FAERS Safety Report 5072608-4 (Version None)
Quarter: 2006Q3

REPORT INFORMATION
  Report Type: 
  Country: None (occurrence: None)
  Receive Date: 20060807
  Receipt Date: 20060622
  Transmission Date: 20061208
  Serious: Yes (Hospitalization)
  Sender: FDA-Public Use
  Company Number: US-ROCHE-452717

PATIENT
  Age: 12 Year
  Sex: Male

DRUGS (2)
  1. PEG-INTERFERON A-2A (RO 25-8310) [Suspect]
     Dosage: FORM REPORTED AS LIQUID. LAST DOSE BEFORE SAE: 02 MAY 2006
     Route: 058
     Dates: start: 20060424
  2. RIBAVIRIN [Suspect]
     Dosage: FREQUENCY REPORTED AS DAILY DATE OF LAST DOSE PRIOR TO SAE: 09 MAY 2006
     Route: 048
     Dates: start: 20060424

REACTIONS (5)
  - APPENDICITIS [None]
  - CHOLECYSTITIS [None]
  - HAEMORRHAGE [None]
  - LIVER DISORDER [None]
  - PROCEDURAL COMPLICATION [None]
